FAERS Safety Report 17445104 (Version 2)
Quarter: 2020Q3

REPORT INFORMATION
  Report Type: Spontaneous
  Country: US (occurrence: US)
  Receive Date: 20200221
  Receipt Date: 20200813
  Transmission Date: 20201102
  Serious: No
  Sender: FDA-Public Use
  Company Number: US-PFIZER INC-2020076879

PATIENT
  Age: 84 Year
  Sex: Female

DRUGS (5)
  1. BUTRANS [Concomitant]
     Active Substance: BUPRENORPHINE
     Dosage: 20 UG, WEEKLY
  2. LYRICA [Suspect]
     Active Substance: PREGABALIN
     Indication: SPINAL OSTEOARTHRITIS
     Dosage: 100 MG, 3X/DAY
     Route: 048
  3. LYRICA [Suspect]
     Active Substance: PREGABALIN
     Indication: POST LAMINECTOMY SYNDROME
  4. LYRICA [Suspect]
     Active Substance: PREGABALIN
     Indication: LYMPHOEDEMA
  5. LYRICA [Suspect]
     Active Substance: PREGABALIN
     Indication: PAIN

REACTIONS (2)
  - Drug ineffective [Unknown]
  - Confusional state [Unknown]
